FAERS Safety Report 10170882 (Version 1)
Quarter: 2014Q2

REPORT INFORMATION
  Report Type: Spontaneous
  Country: FR (occurrence: None)
  Receive Date: 20140512
  Receipt Date: 20140512
  Transmission Date: 20141212
  Serious: Yes (Death, Hospitalization)
  Sender: FDA-Public Use
  Company Number: SYM-2014-20371

PATIENT
  Age: 79 Year
  Sex: Female

DRUGS (6)
  1. FLAGYL (METRONIDAZOLE) (METRONIDAZOLE) [Suspect]
     Indication: CHOLANGITIS
     Route: 048
     Dates: start: 20131214, end: 20131217
  2. LASILIX (FUROSEMIDE) (FUROSEMIDE) [Suspect]
     Indication: PRODUCT USED FOR UNKNOWN INDICATION
     Route: 048
  3. ROCHEPHINE (CEFTRIAXONE SODIUM) (CEFTRIAXONE SODIUM) [Suspect]
     Indication: CHOLANGITIS
     Route: 048
  4. INEXIUM (ESOMEPRAZOLE MAGNESIUM) (ESOMEPRAZOLE MAGNESIUM) [Suspect]
     Indication: PRODUCT USED FOR UNKNOWN INDICATION
     Route: 048
  5. COUMADINE (WARFARIN SODIUM) [Suspect]
     Indication: PRODUCT USED FOR UNKNOWN INDICATION
     Route: 048
  6. CARDENSIEL (BISOPROLOL FUMARATE) (BISOPROLOL FUMARATE) [Suspect]
     Indication: PRODUCT USED FOR UNKNOWN INDICATION
     Route: 048

REACTIONS (9)
  - Toxic skin eruption [None]
  - Pruritus [None]
  - Eosinophilia [None]
  - Rash maculo-papular [None]
  - Renal failure acute [None]
  - Cholestasis [None]
  - International normalised ratio increased [None]
  - Interstitial lung disease [None]
  - General physical health deterioration [None]
